FAERS Safety Report 8426040-3 (Version None)
Quarter: 2012Q2

REPORT INFORMATION
  Report Type: 
  Country: None (occurrence: None)
  Receive Date: 20120611
  Receipt Date: 20120531
  Transmission Date: 20120825
  Serious: Yes (Other)
  Sender: FDA-Public Use
  Company Number: CH-JNJFOC-20120604338

PATIENT
  Age: 41 Year
  Sex: Female

DRUGS (4)
  1. ANDREAFOL [Concomitant]
     Indication: PRODUCT USED FOR UNKNOWN INDICATION
     Route: 065
  2. SYMBICORT [Suspect]
     Indication: ASTHMA
     Route: 065
  3. ZYRTEC [Suspect]
     Indication: SEASONAL ALLERGY
     Route: 065
  4. ZYRTEC [Suspect]
     Route: 065

REACTIONS (2)
  - ABORTION [None]
  - MATERNAL EXPOSURE DURING PREGNANCY [None]
